FAERS Safety Report 12262360 (Version 5)
Quarter: 2016Q3

REPORT INFORMATION
  Report Type: Spontaneous
  Country: PE (occurrence: PE)
  Receive Date: 20160413
  Receipt Date: 20160819
  Transmission Date: 20161109
  Serious: Yes (Hospitalization, Other)
  Sender: FDA-Public Use
  Company Number: PE-SA-2016SA069682

PATIENT
  Age: 11 Year
  Sex: Male
  Weight: 20 kg

DRUGS (1)
  1. CEREZYME [Suspect]
     Active Substance: IMIGLUCERASE
     Indication: GAUCHER^S DISEASE TYPE I
     Dosage: 4 VILAS/INFUSION (1600 U)
     Route: 041
     Dates: start: 20141107

REACTIONS (12)
  - Pyrexia [Recovered/Resolved]
  - Acute respiratory failure [Recovered/Resolved]
  - Epistaxis [Recovered/Resolved]
  - Ear haemorrhage [Recovered/Resolved]
  - Seizure [Recovered/Resolved]
  - Somnolence [Unknown]
  - Platelet count decreased [Unknown]
  - Fungal infection [Unknown]
  - Irritability [Unknown]
  - White blood cell count decreased [Unknown]
  - Vomiting [Recovered/Resolved]
  - Diarrhoea [Recovered/Resolved]

NARRATIVE: CASE EVENT DATE: 20160212
